FAERS Safety Report 4850429-2 (Version None)
Quarter: 2005Q4

REPORT INFORMATION
  Report Type: 
  Country: None (occurrence: None)
  Receive Date: 20051125
  Receipt Date: 20050608
  Transmission Date: 20060501
  Serious: Yes (Other)
  Sender: FDA-Public Use
  Company Number: 2004026562

PATIENT
  Sex: Female

DRUGS (3)
  1. TIKOSYN [Suspect]
     Indication: ILL-DEFINED DISORDER
     Dosage: 500 MCG (250 MCG, 2 IN 1 D),
  2. AMOXICILLIN [Concomitant]
  3. FLUCONAZOLE [Concomitant]

REACTIONS (5)
  - BACK DISORDER [None]
  - BREAST PAIN [None]
  - MASTECTOMY [None]
  - MUSCULOSKELETAL CHEST PAIN [None]
  - STOMACH DISCOMFORT [None]
